FAERS Safety Report 7772244-2 (Version None)
Quarter: 2011Q3

REPORT INFORMATION
  Report Type: 
  Country: None (occurrence: None)
  Receive Date: 20110922
  Receipt Date: 20110420
  Transmission Date: 20111222
  Serious: No
  Sender: FDA-Public Use
  Company Number: US-ASTRAZENECA-2011SE23695

PATIENT
  Age: 43 Year
  Sex: Male

DRUGS (4)
  1. CLONIDINE [Concomitant]
  2. KLONOPIN [Concomitant]
  3. SEROQUEL XR [Suspect]
     Route: 048
  4. PROZAC [Concomitant]

REACTIONS (1)
  - ARRHYTHMIA [None]
